FAERS Safety Report 7380602-3 (Version None)
Quarter: 2011Q1

REPORT INFORMATION
  Report Type: 
  Country: None (occurrence: None)
  Receive Date: 20110321
  Receipt Date: 20110311
  Transmission Date: 20110831
  Serious: Yes (Hospitalization)
  Sender: FDA-Public Use
  Company Number: 029134

PATIENT
  Sex: Female
  Weight: 63.5036 kg

DRUGS (6)
  1. ESTRADIOL [Concomitant]
  2. CYMBALTA [Concomitant]
  3. LEVOTHYROXINE [Concomitant]
  4. ADDERALL 10 [Concomitant]
  5. XYZAL [Suspect]
     Indication: FOOD ALLERGY
     Dosage: 5 MG, QD, ORAL
     Route: 048
     Dates: start: 20110201, end: 20110218
  6. TOPIRAMATE [Concomitant]

REACTIONS (5)
  - CHEST DISCOMFORT [None]
  - SINUS TACHYCARDIA [None]
  - CHEST PAIN [None]
  - BLOOD PRESSURE DECREASED [None]
  - FATIGUE [None]
